FAERS Safety Report 12609493 (Version 2)
Quarter: 2017Q1

REPORT INFORMATION
  Report Type: Spontaneous
  Country: IT (occurrence: IT)
  Receive Date: 20160801
  Receipt Date: 20170122
  Transmission Date: 20170428
  Serious: Yes (Other)
  Sender: FDA-Public Use
  Company Number: IT-ROCHE-1804479

PATIENT
  Age: 85 Year
  Sex: Male

DRUGS (14)
  1. METFORMIN [Concomitant]
     Active Substance: METFORMIN HYDROCHLORIDE
     Indication: DIABETES MELLITUS
     Dosage: PERIOD: 3 YEARS
     Route: 048
  2. TENORMIN [Concomitant]
     Active Substance: ATENOLOL
     Indication: CARDIAC DISORDER
     Dosage: ^100 MG TABLETS^ 42 TABLETS,PERIOD: 2 YEARS
     Route: 048
  3. LACIREX [Concomitant]
     Active Substance: LACIDIPINE
     Indication: HYPERTENSION
     Dosage: ^4 MG FILM-COATED TABLETS^PERIOD:3 YEARS
     Route: 048
  4. EBIXA [Suspect]
     Active Substance: MEMANTINE HYDROCHLORIDE
     Indication: COGNITIVE DISORDER
     Dosage: 56 X10 MG IN BLISTER PACK ORAL USE PERIOD:6 MONTHS
     Route: 048
  5. PARACETAMOL [Concomitant]
     Active Substance: ACETAMINOPHEN
     Indication: PROCEDURAL PAIN
     Route: 048
     Dates: start: 20150407, end: 20150531
  6. QUETIAPINE. [Interacting]
     Active Substance: QUETIAPINE
     Indication: ABNORMAL BEHAVIOUR
     Dosage: ^25 MG FILM-COATED TABLETS^PERIOD: 3 MONTHS
     Route: 048
  7. RIVOTRIL [Suspect]
     Active Substance: CLONAZEPAM
     Indication: ABNORMAL BEHAVIOUR
     Dosage: ^2.5 MG/ML ORAL DROPS, SOLUTION^
     Route: 048
     Dates: start: 20150407, end: 20150531
  8. TRITTICO [Suspect]
     Active Substance: TRAZODONE HYDROCHLORIDE
     Indication: COGNITIVE DISORDER
     Dosage: ^25 MG/ML ORAL DROPS, SOLUTION^
     Route: 048
     Dates: start: 20150410, end: 20150531
  9. DEPAKIN [Suspect]
     Active Substance: VALPROATE SODIUM
     Indication: COGNITIVE DISORDER
     Dosage: ^500 MG GASTRO-RESISTANT TABLETS^ 40 TABLETS
     Route: 048
  10. PANTORC [Concomitant]
     Active Substance: PANTOPRAZOLE SODIUM
     Indication: GASTRITIS PROPHYLAXIS
     Dosage: 14 GASTRO-RESISTANT TABLETS ,PERIOD:3 YEARS
     Route: 048
  11. CARDIOASPIRIN [Concomitant]
     Active Substance: ASPIRIN
     Indication: PLATELET AGGREGATION INHIBITION
     Dosage: ^100 MG GASTRO-RESISTANT TABS PERIOD: 3 YEARS
     Route: 065
  12. FLUXUM [Concomitant]
     Active Substance: PARNAPARIN SODIUM
     Indication: THROMBOSIS PROPHYLAXIS
     Dosage: 4,250 I.U. AXA 6 X 0.4 ML PRE-FILLED SYRINGES
     Route: 058
     Dates: start: 20150407, end: 20150531
  13. LACTULOSE. [Concomitant]
     Active Substance: LACTULOSE
     Dosage: PERIOD: 1 YEAR
     Route: 048
  14. SINVACOR [Concomitant]
     Active Substance: SIMVASTATIN
     Route: 065

REACTIONS (3)
  - Sopor [Recovered/Resolved]
  - Miosis [Recovered/Resolved]
  - Drug interaction [Unknown]

NARRATIVE: CASE EVENT DATE: 20150531
